FAERS Safety Report 23034993 (Version 1)
Quarter: 2023Q4

REPORT INFORMATION
  Report Type: Spontaneous
  Country: US (occurrence: US)
  Receive Date: 20231005
  Receipt Date: 20231005
  Transmission Date: 20240110
  Serious: No
  Sender: FDA-Public Use
  Company Number: US-BAUSCH-BL-2023-014471

PATIENT
  Age: 81 Year
  Sex: Male

DRUGS (1)
  1. FLUOROURACIL [Suspect]
     Active Substance: FLUOROURACIL
     Indication: Rash macular
     Route: 061
     Dates: start: 202309

REACTIONS (2)
  - Application site erythema [Unknown]
  - Application site scab [Unknown]
